FAERS Safety Report 7663429-4 (Version None)
Quarter: 2011Q3

REPORT INFORMATION
  Report Type: 
  Country: None (occurrence: None)
  Receive Date: 20110805
  Receipt Date: 20100817
  Transmission Date: 20111222
  Serious: No
  Sender: FDA-Public Use
  Company Number: US-ABBOTT-10P-163-0653477-00

PATIENT
  Sex: Male
  Weight: 99.88 kg

DRUGS (5)
  1. PLAVIX [Concomitant]
     Indication: PRODUCT USED FOR UNKNOWN INDICATION
     Dates: start: 20080101
  2. LISINOPRIL [Concomitant]
     Indication: PRODUCT USED FOR UNKNOWN INDICATION
  3. NIASPAN [Suspect]
     Indication: HIGH DENSITY LIPOPROTEIN DECREASED
     Dates: start: 20100623
  4. PRAVASTATIN [Concomitant]
     Indication: PRODUCT USED FOR UNKNOWN INDICATION
  5. ASPIRIN [Concomitant]
     Indication: PRODUCT USED FOR UNKNOWN INDICATION
     Dates: start: 20100617, end: 20100618

REACTIONS (8)
  - PRURITUS [None]
  - SLEEP DISORDER [None]
  - ERYTHEMA [None]
  - BURNING SENSATION [None]
  - LOSS OF CONSCIOUSNESS [None]
  - SKIN BURNING SENSATION [None]
  - ECCHYMOSIS [None]
  - HOT FLUSH [None]
